FAERS Safety Report 24179910 (Version 1)
Quarter: 2024Q3

REPORT INFORMATION
  Report Type: Spontaneous
  Country: US (occurrence: None)
  Receive Date: 20240805
  Receipt Date: 20240805
  Transmission Date: 20241017
  Serious: Yes (Hospitalization)
  Sender: Public
  Company Number: None

PATIENT
  Age: 73 Year
  Sex: Male
  Weight: 108.5 kg

DRUGS (5)
  1. TECARTUS [Suspect]
     Active Substance: BREXUCABTAGENE AUTOLEUCEL
     Indication: Mantle cell lymphoma
     Dosage: FREQUENCY : ONCE;?1 DF DOSAGE FORM ONCE INTRAVENOUS
     Route: 042
     Dates: start: 20240604, end: 20240604
  2. RITUXIMAB [Suspect]
     Active Substance: RITUXIMAB
  3. CYCLOPHOSPHAMIDE [Suspect]
     Active Substance: CYCLOPHOSPHAMIDE
  4. FLUDARABINE [Suspect]
     Active Substance: FLUDARABINE PHOSPHATE
  5. ZANUBRUTINIB [Suspect]
     Active Substance: ZANUBRUTINIB

REACTIONS (4)
  - Disease recurrence [None]
  - Cytokine release syndrome [None]
  - Confusional state [None]
  - Immune effector cell-associated neurotoxicity syndrome [None]

NARRATIVE: CASE EVENT DATE: 20240609
